FAERS Safety Report 10144899 (Version 1)
Quarter: 2014Q2

REPORT INFORMATION
  Report Type: Spontaneous
  Country: US (occurrence: US)
  Receive Date: 20140430
  Receipt Date: 20140430
  Transmission Date: 20141212
  Serious: No
  Sender: FDA-Public Use
  Company Number: US-SA-2013SA101129

PATIENT
  Sex: Female

DRUGS (6)
  1. DEMEROL [Suspect]
     Route: 065
  2. ACYCLOVIR [Concomitant]
     Route: 065
  3. CYMBALTA [Concomitant]
     Route: 065
  4. LISINOPRIL [Concomitant]
     Dosage: DOSE:10-12.5
     Route: 065
  5. MULTIVITAMINS [Concomitant]
  6. VITAMIN D [Concomitant]
     Dosage: DOSE:1000 INCH(ES)
     Route: 065

REACTIONS (1)
  - Hypersensitivity [Unknown]
